FAERS Safety Report 17212266 (Version 1)
Quarter: 2019Q4

REPORT INFORMATION
  Report Type: Spontaneous
  Country: SE (occurrence: SE)
  Receive Date: 20191230
  Receipt Date: 20191230
  Transmission Date: 20200122
  Serious: Yes (Hospitalization)
  Sender: FDA-Public Use
  Company Number: SE-TEVA-2019-SE-1158775

PATIENT
  Age: 27 Year
  Sex: Female

DRUGS (5)
  1. PROPAVAN [Suspect]
     Active Substance: PROPIOMAZINE
     Dosage: 2.5  GRAM
     Route: 048
     Dates: start: 20180123, end: 20180123
  2. SUMATRIPTAN. [Suspect]
     Active Substance: SUMATRIPTAN
     Dosage: 250 MG
     Dates: start: 20180123, end: 20180123
  3. CONCERTA [Suspect]
     Active Substance: METHYLPHENIDATE HYDROCHLORIDE
     Dosage: ^UNKNOWN QUANTITIES^
     Dates: start: 20180123, end: 20180123
  4. METOPROLOL. [Suspect]
     Active Substance: METOPROLOL
     Dosage: 250 MG
     Dates: start: 20180123, end: 20180123
  5. ATARAX [Suspect]
     Active Substance: HYDROXYZINE HYDROCHLORIDE
     Dosage: 625 MG
     Dates: start: 20180123, end: 20180123

REACTIONS (2)
  - Intentional overdose [Unknown]
  - Intentional self-injury [Unknown]

NARRATIVE: CASE EVENT DATE: 20180123
